FAERS Safety Report 16949164 (Version 2)
Quarter: 2019Q4

REPORT INFORMATION
  Report Type: Report from Study
  Country: IT (occurrence: IT)
  Receive Date: 20191023
  Receipt Date: 20191106
  Transmission Date: 20200122
  Serious: Yes (Other)
  Sender: FDA-Public Use
  Company Number: IT-TEVA-2019-IT-1124874

PATIENT
  Age: 38 Year
  Sex: Female

DRUGS (8)
  1. CARBOLITHIUM 300 MG CAPSULE RIGIDE [Interacting]
     Active Substance: LITHIUM CARBONATE
     Indication: BIPOLAR DISORDER
     Dosage: 1 DOSAGE FORMS PER DAY
     Route: 048
  2. RIVOTRIL [Concomitant]
     Active Substance: CLONAZEPAM
     Dosage: 3 DOSAGE FORMS
     Route: 048
  3. MAG-02 [Concomitant]
     Dosage: 2 DOSAGE FORMS
     Route: 048
  4. POTASSION - SALI DI POTASSIO [Concomitant]
     Dosage: 4 DOSAGE FORMS
     Route: 048
  5. FLUOXETINE [Suspect]
     Active Substance: FLUOXETINE HYDROCHLORIDE
     Indication: BIPOLAR DISORDER
     Dosage: 20 MG PER DAY
     Route: 048
  6. VALDORM 30 MG CAPSULE [Concomitant]
     Active Substance: FLURAZEPAM HYDROCHLORIDE
     Dosage: 1 DOSAGE FORMS
     Route: 048
  7. BENERVA 300 MG COMPRESSE GASTRORESISTENTI [Concomitant]
     Active Substance: THIAMINE HYDROCHLORIDE
     Dosage: 2 DOSAGE FORMS
     Route: 048
  8. PURSENNID 12 MG COMPRESSE RIVESTITE [Concomitant]
     Dosage: 2 DOSAGE FORMS
     Route: 048

REACTIONS (3)
  - Drug interaction [Recovering/Resolving]
  - Hypokalaemia [Recovering/Resolving]
  - Electrocardiogram QT prolonged [Recovering/Resolving]

NARRATIVE: CASE EVENT DATE: 20190606
